FAERS Safety Report 5051165-2 (Version None)
Quarter: 2006Q3

REPORT INFORMATION
  Report Type: 
  Country: None (occurrence: None)
  Receive Date: 20060714
  Receipt Date: 20060704
  Transmission Date: 20061208
  Serious: Yes (Other)
  Sender: FDA-Public Use
  Company Number: US-KINGPHARMUSA00001-K200600867

PATIENT

DRUGS (1)
  1. ALTACE [Suspect]
     Route: 048
     Dates: start: 20050301

REACTIONS (2)
  - OPHTHALMOPLEGIA [None]
  - POLYNEUROPATHY [None]
